FAERS Safety Report 4542083-4 (Version None)
Quarter: 2004Q4

REPORT INFORMATION
  Report Type: 
  Country: None (occurrence: None)
  Receive Date: 20041227
  Receipt Date: 20041216
  Transmission Date: 20050328
  Serious: Yes (Death)
  Sender: FDA-Public Use
  Company Number: 211202

PATIENT
  Sex: Female

DRUGS (1)
  1. RITUXAN [Suspect]
     Indication: CENTRAL NERVOUS SYSTEM LYMPHOMA
     Dosage: 25 MG, SINGLE, INTRATHECAL
     Route: 037
     Dates: start: 20041011, end: 20041011

REACTIONS (2)
  - ASTHENIA [None]
  - CONVULSION [None]
